FAERS Safety Report 8100420-8 (Version None)
Quarter: 2012Q1

REPORT INFORMATION
  Report Type: 
  Country: None (occurrence: None)
  Receive Date: 20120129
  Receipt Date: 20111117
  Transmission Date: 20120608
  Serious: No
  Sender: FDA-Public Use
  Company Number: US-ABBOTT-11P-163-0874965-00

PATIENT
  Sex: Female
  Weight: 64.468 kg

DRUGS (2)
  1. UNKNOWN MEDICATION [Concomitant]
     Indication: THYROID DISORDER
  2. HUMIRA [Suspect]
     Indication: CROHN'S DISEASE
     Dates: start: 20100101

REACTIONS (11)
  - INFLUENZA LIKE ILLNESS [None]
  - SINUSITIS [None]
  - ARTHRALGIA [None]
  - INFLUENZA [None]
  - PAIN IN EXTREMITY [None]
  - GAIT DISTURBANCE [None]
  - PYREXIA [None]
  - EYE PAIN [None]
  - TENDERNESS [None]
  - HERPES ZOSTER [None]
  - PAIN [None]
